FAERS Safety Report 7052736-4 (Version None)
Quarter: 2010Q4

REPORT INFORMATION
  Report Type: 
  Country: None (occurrence: None)
  Receive Date: 20101019
  Receipt Date: 20101008
  Transmission Date: 20110411
  Serious: Yes (Hospitalization)
  Sender: FDA-Public Use
  Company Number: BR-GILEAD-2010-0032443

PATIENT
  Age: 2 Day
  Sex: Female
  Weight: 2.7 kg

DRUGS (5)
  1. TENOFOVIR DISOPROXIL FUMARATE [Suspect]
     Indication: HIV INFECTION
     Route: 064
     Dates: start: 20101005, end: 20101005
  2. ZIDOVUDINE [Concomitant]
     Indication: HIV INFECTION
     Route: 064
     Dates: start: 20101005
  3. HEPATITIS B VIRUS VACCINE [Concomitant]
     Dates: start: 20101005
  4. PHYTONADIONE [Concomitant]
     Dates: start: 20101005
  5. SILVER NITRATE [Concomitant]
     Dates: start: 20100510

REACTIONS (1)
  - SEPSIS NEONATAL [None]
